FAERS Safety Report 17037905 (Version 3)
Quarter: 2020Q2

REPORT INFORMATION
  Report Type: Spontaneous
  Country: FR (occurrence: FR)
  Receive Date: 20191115
  Receipt Date: 20200416
  Transmission Date: 20200713
  Serious: Yes (Hospitalization)
  Sender: FDA-Public Use
  Company Number: FR-ALSI-201900472

PATIENT
  Age: 22 Year
  Sex: Female

DRUGS (1)
  1. NITROUS OXIDE. [Suspect]
     Active Substance: NITROUS OXIDE
     Indication: SUBSTANCE ABUSER
     Route: 055
     Dates: end: 20190816

REACTIONS (3)
  - Paraesthesia [Recovered/Resolved]
  - Pulmonary embolism [Recovered/Resolved]
  - Substance abuser [Unknown]
